FAERS Safety Report 5411529-1 (Version None)
Quarter: 2007Q3

REPORT INFORMATION
  Report Type: 
  Country: None (occurrence: None)
  Receive Date: 20070810
  Receipt Date: 20070806
  Transmission Date: 20080115
  Serious: Yes (Hospitalization)
  Sender: FDA-Public Use
  Company Number: US-ROXANE LABORATORIES, INC-2007-BP-18596RO

PATIENT
  Age: 17 Year
  Sex: Male

DRUGS (8)
  1. DEXAMETHASONE 0.5MG TAB [Suspect]
     Indication: CHEMOTHERAPY
  2. RANITIDINE [Suspect]
     Indication: PROPHYLAXIS
  3. POLYETHYLENE GLYCOL-ASPARAGINASE [Suspect]
     Indication: CHEMOTHERAPY
  4. VINCRISTINE [Suspect]
     Indication: CHEMOTHERAPY
  5. DOXORUBICIN [Suspect]
     Indication: CHEMOTHERAPY
  6. OPIATES [Suspect]
     Indication: ANALGESIA
  7. RANITIDINE [Concomitant]
     Indication: GASTRITIS PROPHYLAXIS
  8. OPIATES [Concomitant]

REACTIONS (12)
  - ABDOMINAL PAIN [None]
  - ASCITES [None]
  - CONSTIPATION [None]
  - DIVERTICULAR PERFORATION [None]
  - DRUG INEFFECTIVE FOR UNAPPROVED INDICATION [None]
  - FEBRILE NEUTROPENIA [None]
  - GASTRITIS [None]
  - HAEMATEMESIS [None]
  - ILEUS [None]
  - MUCOSAL INFLAMMATION [None]
  - PNEUMOPERITONEUM [None]
  - SEPSIS [None]
